FAERS Safety Report 9549546 (Version 1)
Quarter: 2013Q3

REPORT INFORMATION
  Report Type: Spontaneous
  Country: US (occurrence: US)
  Receive Date: 20130924
  Receipt Date: 20130924
  Transmission Date: 20140515
  Serious: Yes (Hospitalization)
  Sender: FDA-Public Use
  Company Number: US-BAYER-2013-112449

PATIENT
  Age: 65 Year
  Sex: Female
  Weight: 84 kg

DRUGS (3)
  1. ALEVE TABLET [Suspect]
     Indication: BACK PAIN
     Dosage: 2 DF, ONCE
     Route: 048
     Dates: start: 20130902, end: 20130902
  2. CENTRUM SILVER [Concomitant]
  3. ACTONEL [Concomitant]

REACTIONS (16)
  - Haematemesis [Recovered/Resolved]
  - Dysstasia [Recovered/Resolved]
  - Diarrhoea haemorrhagic [None]
  - Gastric ulcer haemorrhage [Not Recovered/Not Resolved]
  - Haemorrhage [Unknown]
  - Vomiting [Recovered/Resolved]
  - Vomiting [Recovered/Resolved]
  - Abdominal discomfort [Not Recovered/Not Resolved]
  - Nausea [Not Recovered/Not Resolved]
  - Hyperhidrosis [Recovered/Resolved]
  - Asthenia [Not Recovered/Not Resolved]
  - Dyspnoea [Not Recovered/Not Resolved]
  - Red blood cell count decreased [Unknown]
  - Weight decreased [None]
  - Diarrhoea [Recovered/Resolved]
  - Sleep disorder [None]
